FAERS Safety Report 18558816 (Version 1)
Quarter: 2020Q4

REPORT INFORMATION
  Report Type: Spontaneous
  Country: US (occurrence: US)
  Receive Date: 20201125
  Receipt Date: 20201125
  Transmission Date: 20210114
  Serious: Yes (Disabling, Other)
  Sender: FDA-Public Use
  Company Number: None

PATIENT
  Age: 55 Year
  Sex: Female
  Weight: 90 kg

DRUGS (2)
  1. LEVAQUIN [Suspect]
     Active Substance: LEVOFLOXACIN
     Indication: SINUSITIS
     Dates: start: 20140130, end: 20151201
  2. LEVAQUIN [Suspect]
     Active Substance: LEVOFLOXACIN
     Indication: BRONCHITIS
     Dates: start: 20140130, end: 20151201

REACTIONS (5)
  - Nervous system disorder [None]
  - Nausea [None]
  - Sleep disorder [None]
  - Tendon rupture [None]
  - Diarrhoea [None]

NARRATIVE: CASE EVENT DATE: 20140201
